FAERS Safety Report 11177490 (Version 1)
Quarter: 2015Q2

REPORT INFORMATION
  Report Type: Spontaneous
  Country: US (occurrence: US)
  Receive Date: 20150610
  Receipt Date: 20150610
  Transmission Date: 20150821
  Serious: No
  Sender: FDA-Public Use
  Company Number: US-BAYER-2015-318890

PATIENT
  Age: 23 Year
  Sex: Female

DRUGS (2)
  1. GADAVIST [Suspect]
     Active Substance: GADOBUTROL
     Indication: ADNEXA UTERI MASS
  2. GADAVIST [Suspect]
     Active Substance: GADOBUTROL
     Indication: NUCLEAR MAGNETIC RESONANCE IMAGING ABDOMINAL
     Dosage: 6 ML, ONCE
     Dates: start: 20150605, end: 20150605

REACTIONS (2)
  - Maternal exposure during pregnancy [None]
  - Product use issue [None]

NARRATIVE: CASE EVENT DATE: 20150605
